FAERS Safety Report 6129939-6 (Version None)
Quarter: 2009Q1

REPORT INFORMATION
  Report Type: 
  Country: None (occurrence: None)
  Receive Date: 20090323
  Receipt Date: 20090323
  Transmission Date: 20090719
  Serious: Yes (Other)
  Sender: FDA-Public Use
  Company Number: None

PATIENT
  Age: 62 Year
  Sex: Female
  Weight: 92.9874 kg

DRUGS (1)
  1. PREDNISONE TAB [Suspect]
     Indication: ASTHMA
     Dosage: 2 TABS 2X DAY PO
     Route: 048
     Dates: start: 20090303, end: 20090320

REACTIONS (8)
  - ABDOMINAL DISCOMFORT [None]
  - ARTHRALGIA [None]
  - BONE PAIN [None]
  - DYSPHAGIA [None]
  - FATIGUE [None]
  - OROPHARYNGEAL PAIN [None]
  - PAIN [None]
  - PAIN OF SKIN [None]
